FAERS Safety Report 20218613 (Version 2)
Quarter: 2022Q1

REPORT INFORMATION
  Report Type: Spontaneous
  Country: CA (occurrence: CA)
  Receive Date: 20211222
  Receipt Date: 20220108
  Transmission Date: 20220423
  Serious: Yes (Other)
  Sender: FDA-Public Use
  Company Number: CA-SA-SAC20211221001033

PATIENT
  Age: 58 Year
  Sex: Male

DRUGS (31)
  1. ARAVA [Suspect]
     Active Substance: LEFLUNOMIDE
     Dosage: UNK
  2. ARAVA [Suspect]
     Active Substance: LEFLUNOMIDE
  3. LEFLUNOMIDE [Suspect]
     Active Substance: LEFLUNOMIDE
     Dosage: UNK
  4. LEFLUNOMIDE [Suspect]
     Active Substance: LEFLUNOMIDE
  5. HYDROXYCHLOROQUINE SULFATE [Suspect]
     Active Substance: HYDROXYCHLOROQUINE SULFATE
     Dosage: UNK
  6. ROSUVASTATIN CALCIUM [Suspect]
     Active Substance: ROSUVASTATIN CALCIUM
     Dosage: UNK
  7. ROSUVASTATIN CALCIUM [Suspect]
     Active Substance: ROSUVASTATIN CALCIUM
  8. METHOTREXATE [Suspect]
     Active Substance: METHOTREXATE
     Dosage: UNK
  9. METHOTREXATE [Suspect]
     Active Substance: METHOTREXATE
  10. GOLD SODIUM THIOMALATE [Suspect]
     Active Substance: GOLD SODIUM THIOMALATE
     Dosage: UNK
  11. TOCILIZUMAB [Suspect]
     Active Substance: TOCILIZUMAB
     Dosage: UNK
  12. TOCILIZUMAB [Suspect]
     Active Substance: TOCILIZUMAB
  13. ENBREL [Suspect]
     Active Substance: ETANERCEPT
     Dosage: UNK
  14. ENBREL [Suspect]
     Active Substance: ETANERCEPT
  15. HUMIRA [Suspect]
     Active Substance: ADALIMUMAB
     Dosage: UNK
  16. GOLD [Suspect]
     Active Substance: GOLD
     Dosage: UNK
  17. ADALIMUMAB [Suspect]
     Active Substance: ADALIMUMAB
     Indication: Rheumatoid arthritis
     Dosage: UNK
  18. ORENCIA [Suspect]
     Active Substance: ABATACEPT
     Dosage: UNK
  19. ORENCIA [Suspect]
     Active Substance: ABATACEPT
  20. REMICADE [Suspect]
     Active Substance: INFLIXIMAB
     Dosage: UNK
  21. REMICADE [Suspect]
     Active Substance: INFLIXIMAB
  22. CANNABIS SATIVA FLOWERING TOP [Concomitant]
     Active Substance: CANNABIS SATIVA FLOWERING TOP
     Dosage: UNK
  23. CANNABIS SATIVA FLOWERING TOP [Concomitant]
     Active Substance: CANNABIS SATIVA FLOWERING TOP
  24. LYRICA [Concomitant]
     Active Substance: PREGABALIN
     Dosage: UNK
  25. LYRICA [Concomitant]
     Active Substance: PREGABALIN
  26. OXYCODONE [Concomitant]
     Active Substance: OXYCODONE
     Dosage: UNK
  27. OXYCODONE [Concomitant]
     Active Substance: OXYCODONE
  28. PREDNISONE [Concomitant]
     Active Substance: PREDNISONE
     Dosage: UNK
  29. PREDNISONE [Concomitant]
     Active Substance: PREDNISONE
  30. XELJANZ [Concomitant]
     Active Substance: TOFACITINIB CITRATE
     Dosage: UNK
  31. XELJANZ [Concomitant]
     Active Substance: TOFACITINIB CITRATE

REACTIONS (23)
  - Rheumatoid arthritis [Unknown]
  - Diabetes mellitus [Unknown]
  - Interstitial lung disease [Unknown]
  - Arthralgia [Unknown]
  - Arthropathy [Unknown]
  - Bone erosion [Unknown]
  - Erythema [Unknown]
  - Haemoglobin decreased [Unknown]
  - Herpes zoster [Unknown]
  - Discomfort [Unknown]
  - Joint swelling [Unknown]
  - Peripheral swelling [Unknown]
  - Red blood cell sedimentation rate abnormal [Unknown]
  - Swelling [Unknown]
  - Skin laceration [Unknown]
  - Ill-defined disorder [Unknown]
  - Rheumatoid factor negative [Unknown]
  - C-reactive protein abnormal [Unknown]
  - Drug hypersensitivity [Unknown]
  - Skin ulcer [Unknown]
  - Urticaria [Unknown]
  - Drug ineffective [Unknown]
  - Treatment failure [Unknown]
